FAERS Safety Report 4266869-9 (Version None)
Quarter: 2004Q1

REPORT INFORMATION
  Report Type: 
  Country: None (occurrence: None)
  Receive Date: 20040108
  Receipt Date: 20040108
  Transmission Date: 20041129
  Serious: Yes (Hospitalization, Other)
  Sender: FDA-Public Use
  Company Number: None

PATIENT
  Age: 30 Year
  Sex: Male
  Weight: 88.4514 kg

DRUGS (1)
  1. TRAZODONE HCL [Suspect]
     Indication: INSOMNIA
     Dosage: 75 MGS 1 AT BEDTI ORAL
     Route: 048
     Dates: start: 20020912, end: 20030515

REACTIONS (25)
  - ABNORMAL DREAMS [None]
  - ANXIETY [None]
  - BURNING SENSATION [None]
  - CHILLS [None]
  - FEAR [None]
  - FEELING ABNORMAL [None]
  - FEELING GUILTY [None]
  - HEADACHE [None]
  - HEART RATE INCREASED [None]
  - HYPERACUSIS [None]
  - HYPERHIDROSIS [None]
  - MOVEMENT DISORDER [None]
  - MUSCLE CONTRACTIONS INVOLUNTARY [None]
  - MUSCLE TWITCHING [None]
  - NEGATIVE THOUGHTS [None]
  - NERVOUS SYSTEM DISORDER [None]
  - NEURALGIA [None]
  - NIGHT SWEATS [None]
  - NIGHTMARE [None]
  - PAIN [None]
  - PARAESTHESIA [None]
  - PHOTOSENSITIVITY REACTION [None]
  - PRURITUS [None]
  - SELF ESTEEM DECREASED [None]
  - THINKING ABNORMAL [None]
